FAERS Safety Report 6146991-2 (Version None)
Quarter: 2009Q2

REPORT INFORMATION
  Report Type: 
  Country: None (occurrence: None)
  Receive Date: 20090403
  Receipt Date: 20090326
  Transmission Date: 20091009
  Serious: Yes (Death, Hospitalization)
  Sender: FDA-Public Use
  Company Number: 2009AL001793

PATIENT
  Age: 59 Year
  Sex: Female

DRUGS (3)
  1. AMANTADINE HCL [Suspect]
     Indication: TREMOR
     Dosage: 100 MG; QD
  2. PROPRANOLOL HCL [Suspect]
     Indication: TREMOR
     Dosage: 20 MG; TID
  3. PRAMIPEXOLE DIHYDROCHLORIDE [Concomitant]

REACTIONS (5)
  - ANAEMIA [None]
  - BLOOD PRESSURE INCREASED [None]
  - CEREBELLAR ATAXIA [None]
  - MYOCLONUS [None]
  - TOXIC ENCEPHALOPATHY [None]
